FAERS Safety Report 6154226-X (Version None)
Quarter: 2009Q2

REPORT INFORMATION
  Report Type: 
  Country: None (occurrence: None)
  Receive Date: 20090414
  Receipt Date: 20090407
  Transmission Date: 20091009
  Serious: Yes (Hospitalization, Other)
  Sender: FDA-Public Use
  Company Number: US-AVENTIS-200912973US

PATIENT
  Age: 11 Year
  Sex: Male

DRUGS (2)
  1. LANTUS [Suspect]
     Indication: TYPE 2 DIABETES MELLITUS
     Dosage: DOSE: LESS THAN 50 UNITS PER DAY
     Route: 058
     Dates: start: 20080101
  2. HUMALOG [Suspect]
     Dosage: DOSE: UNK

REACTIONS (4)
  - BLOOD INSULIN INCREASED [None]
  - DIABETES MELLITUS INADEQUATE CONTROL [None]
  - HYPOGLYCAEMIA [None]
  - OVERDOSE [None]
